FAERS Safety Report 7780680-3 (Version None)
Quarter: 2011Q3

REPORT INFORMATION
  Report Type: 
  Country: None (occurrence: None)
  Receive Date: 20110927
  Receipt Date: 20110603
  Transmission Date: 20111222
  Serious: No
  Sender: FDA-Public Use
  Company Number: US-BRISTOL-MYERS SQUIBB COMPANY-15609506

PATIENT
  Age: 70 Year
  Sex: Female
  Weight: 70 kg

DRUGS (11)
  1. HYDROCHLOROTHIAZIDE [Suspect]
  2. BYSTOLIC [Suspect]
     Dates: start: 20101001
  3. CRESTOR [Concomitant]
  4. NEURONTIN [Concomitant]
     Dates: start: 20110101
  5. PERCOCET [Concomitant]
  6. FIORICET [Concomitant]
     Indication: HEADACHE
  7. AVALIDE [Suspect]
  8. EXCEDRIN (MIGRAINE) [Concomitant]
  9. CITRACAL [Concomitant]
  10. ACTONEL [Concomitant]
  11. AVAPRO [Suspect]
     Dosage: INCREASED UPTO 150-300 MG JULY2010 AND AUGUST 2010
     Dates: start: 19900101

REACTIONS (4)
  - DIZZINESS [None]
  - DRUG INEFFECTIVE [None]
  - HYPOTENSION [None]
  - MALAISE [None]
